FAERS Safety Report 9931954 (Version 1)
Quarter: 2014Q1

REPORT INFORMATION
  Report Type: Spontaneous
  Country: US (occurrence: US)
  Receive Date: 20140228
  Receipt Date: 20140228
  Transmission Date: 20141002
  Serious: No
  Sender: FDA-Public Use
  Company Number: US-ABBVIE-13P-163-1133930-00

PATIENT
  Sex: Male

DRUGS (2)
  1. ANDROGEL [Suspect]
     Indication: BLOOD TESTOSTERONE DECREASED
     Dosage: 4 PUMPS, APPLYING WITH GLOVES ON
     Route: 061
     Dates: end: 201307
  2. ANDROGEL [Suspect]
     Dosage: 6 PUMPS, APPLYING WITH GLOVES ON
     Route: 061
     Dates: start: 201307

REACTIONS (2)
  - Incorrect dose administered [Not Recovered/Not Resolved]
  - Asthenia [Recovered/Resolved]
